FAERS Safety Report 6413277-8 (Version None)
Quarter: 2009Q4

REPORT INFORMATION
  Report Type: 
  Country: None (occurrence: None)
  Receive Date: 20091026
  Receipt Date: 20091014
  Transmission Date: 20100525
  Serious: Yes (Other)
  Sender: FDA-Public Use
  Company Number: JP-ROCHE-400778

PATIENT
  Sex: Male

DRUGS (7)
  1. TAMIFLU [Suspect]
     Indication: INFLUENZA
     Route: 048
     Dates: start: 20050221, end: 20050223
  2. CALONAL [Suspect]
     Indication: PYREXIA
     Dosage: FORM: ORAL (NOS). TAKEN AS NEEDED.
     Route: 048
     Dates: start: 20050221, end: 20050223
  3. LOXONIN [Concomitant]
     Dosage: FORM: ORAL (NOS).
     Route: 048
  4. ZYRTEC [Concomitant]
     Dates: start: 20050221, end: 20050223
  5. PHYSIOSOL 3 [Concomitant]
     Dates: start: 20050222, end: 20050222
  6. TAGAMET [Concomitant]
     Dates: start: 20050223, end: 20050224
  7. LOXOPROFEN SODIUM [Concomitant]
     Dosage: TAKEN AS NEEDED.
     Dates: start: 20050223, end: 20050224

REACTIONS (1)
  - STEVENS-JOHNSON SYNDROME [None]
